FAERS Safety Report 18476540 (Version 1)
Quarter: 2020Q4

REPORT INFORMATION
  Report Type: Spontaneous
  Country: US (occurrence: US)
  Receive Date: 20201107
  Receipt Date: 20201107
  Transmission Date: 20210114
  Serious: Yes (Other)
  Sender: FDA-Public Use
  Company Number: US-B.I. PHARMACEUTICALS,INC./RIDGEFIELD-2020-BI-058739

PATIENT
  Age: 58 Year
  Sex: Male

DRUGS (7)
  1. MIRAPEX [Suspect]
     Active Substance: PRAMIPEXOLE DIHYDROCHLORIDE
     Dosage: 0.75MG EVERY EVENING
     Dates: start: 2014, end: 2016
  2. MIRAPEX [Suspect]
     Active Substance: PRAMIPEXOLE DIHYDROCHLORIDE
     Dosage: 1MG EVERY EVENING
     Dates: start: 2016, end: 2018
  3. MIRAPEX [Suspect]
     Active Substance: PRAMIPEXOLE DIHYDROCHLORIDE
     Dosage: 1.5MG EVERY EVENING
     Dates: start: 2018, end: 202007
  4. MIRAPEX [Suspect]
     Active Substance: PRAMIPEXOLE DIHYDROCHLORIDE
     Indication: RESTLESS LEGS SYNDROME
     Dosage: 0.125MG EVERY EVENING
     Dates: start: 2011, end: 2014
  5. MIRAPEX [Suspect]
     Active Substance: PRAMIPEXOLE DIHYDROCHLORIDE
     Dosage: 1MG EVERY EVENING
     Dates: start: 202007, end: 202009
  6. MIRAPEX [Suspect]
     Active Substance: PRAMIPEXOLE DIHYDROCHLORIDE
     Dosage: 0.5MG
     Dates: start: 202009
  7. METHADONE [Concomitant]
     Active Substance: METHADONE HYDROCHLORIDE
     Indication: DRUG THERAPY
     Dosage: 15MG ONCE IN THE EVENING
     Dates: start: 202007

REACTIONS (5)
  - Intentional overdose [Recovered/Resolved]
  - Somnolence [Unknown]
  - Suicidal ideation [Recovered/Resolved]
  - Obsessive-compulsive personality disorder [Recovered/Resolved]
  - Depression [Recovered/Resolved]

NARRATIVE: CASE EVENT DATE: 2014
